FAERS Safety Report 13389341 (Version 1)
Quarter: 2017Q1

REPORT INFORMATION
  Report Type: Spontaneous
  Country: GB (occurrence: GB)
  Receive Date: 20170330
  Receipt Date: 20170330
  Transmission Date: 20170429
  Serious: Yes (Hospitalization)
  Sender: FDA-Public Use
  Company Number: GB-PFIZER INC-2017131332

PATIENT
  Age: 68 Year
  Sex: Female

DRUGS (1)
  1. LYRICA [Suspect]
     Active Substance: PREGABALIN
     Indication: EPILEPSY
     Dosage: 25 MG, 2X/DAY

REACTIONS (8)
  - Tachycardia [Unknown]
  - Long QT syndrome [Unknown]
  - Condition aggravated [Unknown]
  - Burning sensation [Unknown]
  - Dyskinesia [Unknown]
  - Accident [Unknown]
  - Chest pain [Unknown]
  - Seizure [Unknown]
